FAERS Safety Report 22960199 (Version 2)
Quarter: 2023Q4

REPORT INFORMATION
  Report Type: Spontaneous
  Country: US (occurrence: US)
  Receive Date: 20230920
  Receipt Date: 20231002
  Transmission Date: 20240110
  Serious: No
  Sender: FDA-Public Use
  Company Number: US-AMGEN-USASP2023164052

PATIENT
  Age: 67 Year
  Sex: Female
  Weight: 35.2 kg

DRUGS (1)
  1. NEULASTA [Suspect]
     Active Substance: PEGFILGRASTIM
     Indication: Breast cancer female
     Dosage: UNK
     Route: 065

REACTIONS (2)
  - Application site pain [Recovered/Resolved]
  - Device physical property issue [Unknown]

NARRATIVE: CASE EVENT DATE: 20230908
